FAERS Safety Report 9549486 (Version 1)
Quarter: 2013Q3

REPORT INFORMATION
  Report Type: Spontaneous
  Country: None (occurrence: None)
  Receive Date: 20130920
  Receipt Date: 20130920
  Transmission Date: 20140515
  Serious: Yes (Hospitalization, Other)
  Sender: FDA-Public Use
  Company Number: 2013/182

PATIENT
  Age: 78 Year
  Sex: Female

DRUGS (9)
  1. CEPHALEXIN (NO PREF. NAME) 500 MG [Suspect]
     Indication: INFECTIVE EXACERBATION OF CHRONIC OBSTRUCTIVE AIRWAYS DISEASE
     Route: 048
     Dates: start: 201210
  2. ALENDRONIC ACID [Concomitant]
  3. ATORVASTATIN [Concomitant]
  4. DOXYCYCLINE [Concomitant]
  5. NICORANDIL [Concomitant]
  6. PREDNISOLONE [Concomitant]
  7. STEROIDS [Concomitant]
  8. TAMAZEPAM [Concomitant]
  9. AMINOPHYLLINE [Concomitant]

REACTIONS (4)
  - Drug ineffective [None]
  - Cough [None]
  - Dyspnoea [None]
  - Neutrophilia [None]
